FAERS Safety Report 8853024 (Version 1)
Quarter: 2012Q4

REPORT INFORMATION
  Report Type: 
  Country: GB (occurrence: GB)
  Receive Date: 20121022
  Receipt Date: 20121022
  Transmission Date: 20130627
  Serious: Yes (Hospitalization)
  Sender: FDA-Public Use
  Company Number: GB-WATSON-2012-18147

PATIENT
  Age: 55 Year
  Sex: Female

DRUGS (2)
  1. TACROLIMUS (UNKNOWN) [Suspect]
     Indication: LIVER TRANSPLANT
     Dosage: 5 mg, bid
     Route: 065
  2. PREDNISOLONE (UNKNOWN) [Suspect]
     Indication: LIVER TRANSPLANT
     Dosage: 15 mg, daily
     Route: 065

REACTIONS (1)
  - Coronary artery dissection [Recovered/Resolved]
